FAERS Safety Report 16545134 (Version 1)
Quarter: 2019Q3

REPORT INFORMATION
  Report Type: Spontaneous
  Country: US (occurrence: US)
  Receive Date: 20190708
  Receipt Date: 20190708
  Transmission Date: 20191004
  Serious: Yes (Other)
  Sender: FDA-Public Use
  Company Number: None

PATIENT
  Age: 35 Year
  Sex: Male
  Weight: 57.69 kg

DRUGS (10)
  1. ESOMEPRAZOLE. [Concomitant]
     Active Substance: ESOMEPRAZOLE MAGNESIUM
     Dates: start: 20180803
  2. BENZTROPINE. [Concomitant]
     Active Substance: BENZTROPINE
     Dates: start: 20180424
  3. CALCIUM CARBONATE. [Concomitant]
     Active Substance: CALCIUM CARBONATE
     Dates: start: 20160808
  4. DIVALPROEX ER [Concomitant]
     Active Substance: DIVALPROEX SODIUM
     Dates: start: 20180417
  5. POLYETHYLENE GLYCOL [Concomitant]
     Active Substance: POLYETHYLENE GLYCOLS
     Dates: start: 20190108
  6. PALIPERIDONE IM [Concomitant]
     Active Substance: PALIPERIDONE
     Dates: start: 20180409
  7. OSELTAMIVIR [Suspect]
     Active Substance: OSELTAMIVIR
     Indication: INFLUENZA
     Route: 048
     Dates: start: 20190513, end: 20190517
  8. LEVOTHYROXINE. [Concomitant]
     Active Substance: LEVOTHYROXINE
     Dates: start: 20160808
  9. OLANZAPINE. [Concomitant]
     Active Substance: OLANZAPINE
     Dates: start: 20180605
  10. SENNOSIDES. [Concomitant]
     Active Substance: SENNOSIDES
     Dates: start: 20160808

REACTIONS (3)
  - Therapy cessation [None]
  - Seizure [None]
  - Heart rate increased [None]

NARRATIVE: CASE EVENT DATE: 20190516
